FAERS Safety Report 6596773-2 (Version None)
Quarter: 2010Q1

REPORT INFORMATION
  Report Type: 
  Country: None (occurrence: None)
  Receive Date: 20100212
  Receipt Date: 20100126
  Transmission Date: 20100710
  Serious: Yes (Other)
  Sender: FDA-Public Use
  Company Number: AUR-APL-2010-00284

PATIENT
  Sex: Male

DRUGS (3)
  1. LAMOTRIGINE [Suspect]
  2. GABAPENTIN [Suspect]
     Dosage: 300MG-TID
  3. DILANTIN [Suspect]

REACTIONS (2)
  - MYOCARDIAL INFARCTION [None]
  - TACHYCARDIA [None]
